FAERS Safety Report 14741054 (Version 2)
Quarter: 2018Q2

REPORT INFORMATION
  Report Type: Spontaneous
  Country: US (occurrence: US)
  Receive Date: 20180410
  Receipt Date: 20180425
  Transmission Date: 20180711
  Serious: No
  Sender: FDA-Public Use
  Company Number: US-GLAXOSMITHKLINE-US2018058827

PATIENT
  Sex: Female

DRUGS (10)
  1. POTASSIUM CHLORIDE. [Concomitant]
     Active Substance: POTASSIUM CHLORIDE
  2. SORIATANE [Suspect]
     Active Substance: ACITRETIN
     Dosage: 50 MG, QD
  3. SORIATANE [Suspect]
     Active Substance: ACITRETIN
     Dosage: 25 MG, QD
  4. PRAVASTATIN. [Concomitant]
     Active Substance: PRAVASTATIN
  5. XARELTO [Concomitant]
     Active Substance: RIVAROXABAN
  6. SORIATANE [Suspect]
     Active Substance: ACITRETIN
     Indication: PSORIASIS
     Route: 048
     Dates: start: 201802, end: 20180327
  7. METFORMIN [Concomitant]
     Active Substance: METFORMIN HYDROCHLORIDE
  8. BETAMETHASONE. [Concomitant]
     Active Substance: BETAMETHASONE
  9. LASIX [Concomitant]
     Active Substance: FUROSEMIDE
  10. HYDROCHLOROTHIAZIDE WITH LISINOPRIL [Concomitant]

REACTIONS (6)
  - Gastrointestinal disorder [Unknown]
  - Skin exfoliation [Unknown]
  - Arthropathy [Unknown]
  - Back pain [Recovered/Resolved]
  - Constipation [Unknown]
  - Gastrooesophageal reflux disease [Unknown]
